FAERS Safety Report 8011109-8 (Version None)
Quarter: 2011Q4

REPORT INFORMATION
  Report Type: 
  Country: None (occurrence: None)
  Receive Date: 20111228
  Receipt Date: 20111220
  Transmission Date: 20120403
  Serious: Yes (Hospitalization, Other)
  Sender: FDA-Public Use
  Company Number: US-ROCHE-802942

PATIENT
  Sex: Male
  Weight: 72.186 kg

DRUGS (3)
  1. MINOCIN [Concomitant]
     Route: 048
  2. TETRACYCLINE [Concomitant]
     Route: 048
  3. ACCUTANE [Suspect]
     Indication: ACNE
     Dosage: ALTERNATING BY 80 MG
     Route: 065
     Dates: start: 19910101, end: 19920201

REACTIONS (6)
  - DRY SKIN [None]
  - BLOOD ALKALINE PHOSPHATASE INCREASED [None]
  - CROHN'S DISEASE [None]
  - INTESTINAL OBSTRUCTION [None]
  - IRRITABLE BOWEL SYNDROME [None]
  - CHAPPED LIPS [None]
